FAERS Safety Report 8191841-6 (Version None)
Quarter: 2012Q1

REPORT INFORMATION
  Report Type: 
  Country: None (occurrence: None)
  Receive Date: 20120307
  Receipt Date: 20120229
  Transmission Date: 20120608
  Serious: Yes (Hospitalization, Other)
  Sender: FDA-Public Use
  Company Number: PHHY2012FR018609

PATIENT
  Sex: Male

DRUGS (5)
  1. EXELON [Concomitant]
     Indication: DEMENTIA ALZHEIMER'S TYPE
     Dosage: 1 DF, BID
     Route: 048
  2. ASPIRIN [Concomitant]
     Indication: CEREBROVASCULAR ACCIDENT
     Dosage: 1 DF, QD
     Route: 048
  3. CLOZAPINE [Suspect]
     Dosage: 0.5 DF, QD
     Dates: start: 20111114, end: 20111213
  4. TERCIAN [Concomitant]
     Dosage: 0.5 DF, QD
     Route: 048
  5. DICLOFENAC SODIUM [Concomitant]
     Dosage: 1 DF, TID
     Route: 061
     Dates: start: 20111006

REACTIONS (26)
  - TACHYARRHYTHMIA [None]
  - DISORIENTATION [None]
  - APHASIA [None]
  - SKIN LESION [None]
  - COMPUTERISED TOMOGRAM ABNORMAL [None]
  - MITRAL VALVE INCOMPETENCE [None]
  - PALLOR [None]
  - ABNORMAL BEHAVIOUR [None]
  - C-REACTIVE PROTEIN INCREASED [None]
  - PYREXIA [None]
  - GENERAL PHYSICAL HEALTH DETERIORATION [None]
  - CONFUSIONAL STATE [None]
  - ELECTROENCEPHALOGRAM ABNORMAL [None]
  - FALL [None]
  - INSOMNIA [None]
  - DIASTOLIC HYPOTENSION [None]
  - SPEECH DISORDER [None]
  - RED BLOOD CELL SEDIMENTATION RATE INCREASED [None]
  - MALAISE [None]
  - RASH [None]
  - HEART RATE IRREGULAR [None]
  - ATRIAL FIBRILLATION [None]
  - AGITATION [None]
  - CREPITATIONS [None]
  - FIBRIN INCREASED [None]
  - WHITE BLOOD CELL COUNT INCREASED [None]
